FAERS Safety Report 22346427 (Version 1)
Quarter: 2023Q2

REPORT INFORMATION
  Report Type: Spontaneous
  Country: NL (occurrence: NL)
  Receive Date: 20230519
  Receipt Date: 20230519
  Transmission Date: 20230722
  Serious: Yes (Death, Congenital Anomaly, Other)
  Sender: FDA-Public Use
  Company Number: None

PATIENT

DRUGS (4)
  1. TEMOZOLOMIDE [Suspect]
     Active Substance: TEMOZOLOMIDE
     Indication: Anaplastic astrocytoma
     Dosage: ^USED 150-^ IN FIRST TRIMESTER OF PREGNANCY
     Route: 064
     Dates: start: 20211204
  2. LEVETIRACETAM [Concomitant]
     Active Substance: LEVETIRACETAM
     Dosage: UNK
  3. LAMOTRIGINE [Concomitant]
     Active Substance: LAMOTRIGINE
     Dosage: UNK
  4. ETHINYL ESTRADIOL\LEVONORGESTREL [Concomitant]
     Active Substance: ETHINYL ESTRADIOL\LEVONORGESTREL
     Dosage: STRENGTH: 30/150 UG

REACTIONS (8)
  - Renal aplasia [Fatal]
  - Multiple congenital abnormalities [Fatal]
  - Dysmorphism [Fatal]
  - Pulmonary hypoplasia [Fatal]
  - Congenital musculoskeletal disorder [Fatal]
  - Skin hypertrophy [Fatal]
  - Megalencephaly [Fatal]
  - Foetal exposure during pregnancy [Unknown]

NARRATIVE: CASE EVENT DATE: 20211204
